FAERS Safety Report 12477671 (Version 1)
Quarter: 2016Q2

REPORT INFORMATION
  Report Type: Report from Study
  Country: US (occurrence: US)
  Receive Date: 20160617
  Receipt Date: 20160617
  Transmission Date: 20160815
  Serious: No
  Sender: FDA-Public Use
  Company Number: PHHY2016US019247

PATIENT
  Age: 40 Year
  Sex: Male

DRUGS (1)
  1. GILENYA [Suspect]
     Active Substance: FINGOLIMOD HYDROCHLORIDE
     Indication: MULTIPLE SCLEROSIS
     Dosage: UNK, QD
     Route: 048

REACTIONS (5)
  - Abdominal distension [Recovered/Resolved]
  - Depression [Unknown]
  - Constipation [Recovered/Resolved]
  - Road traffic accident [Unknown]
  - Fatigue [Unknown]

NARRATIVE: CASE EVENT DATE: 20150807
